FAERS Safety Report 18121260 (Version 1)
Quarter: 2020Q3

REPORT INFORMATION
  Report Type: Spontaneous
  Country: CN (occurrence: CN)
  Receive Date: 20200807
  Receipt Date: 20200807
  Transmission Date: 20201103
  Serious: Yes (Hospitalization)
  Sender: FDA-Public Use
  Company Number: CN-DRREDDYS-GPV/CHN/20/0125585

PATIENT
  Age: 70 Year
  Sex: Female
  Weight: 59 kg

DRUGS (5)
  1. OLANZAPINE. [Suspect]
     Active Substance: OLANZAPINE
     Indication: ANXIETY
     Dosage: 5.000000MG,QD
     Route: 048
     Dates: start: 20200630, end: 20200717
  2. CONGRONG TONGBIAN ORAL LIQUID [Concomitant]
     Indication: CONSTIPATION
     Dosage: 10.000000MG ML ONCE DAILY
     Route: 048
     Dates: start: 20200630, end: 20200725
  3. VENLAFAXINE HYDROCHLORIDE SUSTAINED?RELEASE CAPSULES [Concomitant]
     Indication: ANXIETY
     Dosage: 150.000000MG ONCE DAILY
     Route: 048
     Dates: start: 20200630, end: 20200725
  4. LORAZEPAM TABLETS [Concomitant]
     Active Substance: LORAZEPAM
     Indication: ANXIETY
     Dosage: 1.000000MG,QD
     Route: 048
     Dates: start: 20200625, end: 20200725
  5. LEVOTHYROXINE SODIUM TABLETS [Concomitant]
     Active Substance: LEVOTHYROXINE SODIUM
     Indication: THYROID MASS
     Dosage: 50.000000MG ONCE DAILY
     Route: 048
     Dates: start: 20200705, end: 20200725

REACTIONS (1)
  - Fibrin D dimer increased [Recovering/Resolving]

NARRATIVE: CASE EVENT DATE: 20200709
